FAERS Safety Report 5552816-6 (Version None)
Quarter: 2007Q4

REPORT INFORMATION
  Report Type: 
  Country: None (occurrence: None)
  Receive Date: 20071210
  Receipt Date: 20071203
  Transmission Date: 20080405
  Serious: Yes (Other)
  Sender: FDA-Public Use
  Company Number: 2007S1012703

PATIENT
  Age: 66 Year
  Sex: Female

DRUGS (2)
  1. CIPROFLOXACIN [Suspect]
     Indication: RESPIRATORY TRACT INFECTION
     Dosage: 500 MG; ORAL; TWICE A DAY
     Route: 048
     Dates: start: 20071105, end: 20071106
  2. CO-CODAMOL (PANADEINE CO) [Concomitant]

REACTIONS (9)
  - ARTHRALGIA [None]
  - ASTHENIA [None]
  - CHILLS [None]
  - DIARRHOEA [None]
  - FLUSHING [None]
  - MALAISE [None]
  - MYALGIA [None]
  - PAIN [None]
  - POLYURIA [None]
